FAERS Safety Report 5320398-X (Version None)
Quarter: 2007Q2

REPORT INFORMATION
  Report Type: 
  Country: None (occurrence: None)
  Receive Date: 20070509
  Receipt Date: 20070413
  Transmission Date: 20071010
  Serious: Yes (Hospitalization)
  Sender: FDA-Public Use
  Company Number: NL-ROCHE-476217

PATIENT
  Age: 33 Year
  Sex: Male

DRUGS (8)
  1. CAPECITABINE [Suspect]
     Dosage: GIVEN SPLIT IN TWO SEPARATED DOSES ON DAYS ONE TO FOURTEEN OF EVERY THREE-WEEK-CYCLE.
     Route: 048
     Dates: start: 20061017
  2. BEVACIZUMAB [Suspect]
     Indication: COLORECTAL CANCER
     Dosage: GIVEN ON DAY ONE OF EACH THREE-WEEK-CYCLE.
     Route: 042
     Dates: start: 20061017
  3. OXALIPLATIN [Suspect]
     Indication: COLORECTAL CANCER
     Dosage: GIVEN ON DAY ONE OF EACH THREE-WEEK-CYCLE.
     Route: 042
     Dates: start: 20061017
  4. SERESTA [Concomitant]
     Route: 048
  5. LOSEC [Concomitant]
  6. PARACETAMOL [Concomitant]
  7. MOVICOLON [Concomitant]
  8. OXYCONTIN [Concomitant]

REACTIONS (2)
  - ILL-DEFINED DISORDER [None]
  - PERIANAL ABSCESS [None]
